FAERS Safety Report 9963955 (Version 1)
Quarter: 2014Q1

REPORT INFORMATION
  Report Type: Spontaneous
  Country: US (occurrence: US)
  Receive Date: 20140305
  Receipt Date: 20140305
  Transmission Date: 20141002
  Serious: Yes (Other)
  Sender: FDA-Public Use
  Company Number: US-ABBVIE-14P-163-1207279-00

PATIENT
  Sex: Female
  Weight: 57.2 kg

DRUGS (6)
  1. SYNTHROID [Suspect]
     Indication: HYPOTHYROIDISM
     Dates: start: 1992
  2. CLONIDINE [Concomitant]
     Indication: HYPERTENSION
  3. GLIMEPIRIDE [Concomitant]
     Indication: DIABETES MELLITUS
  4. JANUVIA [Concomitant]
     Indication: DIABETES MELLITUS
  5. NIFEDIPINE [Concomitant]
     Indication: HYPERTENSION
  6. DIOVAN [Concomitant]
     Indication: HYPERTENSION

REACTIONS (2)
  - Renal failure [Not Recovered/Not Resolved]
  - Coeliac disease [Not Recovered/Not Resolved]
